FAERS Safety Report 14944660 (Version 2)
Quarter: 2018Q2

REPORT INFORMATION
  Report Type: Spontaneous
  Country: CA (occurrence: CA)
  Receive Date: 20180529
  Receipt Date: 20180605
  Transmission Date: 20180711
  Serious: Yes (Other)
  Sender: FDA-Public Use
  Company Number: CA-BEH-2018090991

PATIENT
  Age: 88 Year
  Sex: Female

DRUGS (7)
  1. LASIX [Concomitant]
     Active Substance: FUROSEMIDE
     Dosage: 10 MG, SINGLE
     Route: 042
     Dates: start: 20171005, end: 20171005
  2. SEEBRI [Concomitant]
     Active Substance: GLYCOPYRRONIUM
     Dosage: 50 ?G, UNK
     Route: 065
     Dates: start: 20171006
  3. SYMBICORT [Concomitant]
     Active Substance: BUDESONIDE\FORMOTEROL FUMARATE DIHYDRATE
     Dosage: 400 ?G, UNK
     Route: 065
     Dates: start: 20171006
  4. MESTINON [Concomitant]
     Active Substance: PYRIDOSTIGMINE BROMIDE
     Route: 065
  5. PRIVIGEN [Suspect]
     Active Substance: HUMAN IMMUNOGLOBULIN G
     Indication: DIARRHOEA
     Dosage: 13.9 ML, UNK
     Route: 065
     Dates: start: 20171006, end: 20171006
  6. VENTOLIN [Concomitant]
     Active Substance: ALBUTEROL SULFATE
     Dosage: 2.5 MG, UNK
     Route: 065
     Dates: start: 20171006
  7. PRIVIGEN [Suspect]
     Active Substance: HUMAN IMMUNOGLOBULIN G
     Indication: MYASTHENIA GRAVIS

REACTIONS (5)
  - Respiratory distress [Recovered/Resolved]
  - Dyspnoea [Recovered/Resolved]
  - Myasthenia gravis crisis [Unknown]
  - Fluid overload [Unknown]
  - Tachypnoea [Recovered/Resolved]

NARRATIVE: CASE EVENT DATE: 20171006
